FAERS Safety Report 13593400 (Version 1)
Quarter: 2017Q2

REPORT INFORMATION
  Report Type: Spontaneous
  Country: KR (occurrence: KR)
  Receive Date: 20170530
  Receipt Date: 20170530
  Transmission Date: 20170830
  Serious: Yes (Other)
  Sender: FDA-Public Use
  Company Number: KR-SA-2017SA092022

PATIENT
  Age: 63 Year
  Sex: Female

DRUGS (2)
  1. ARAVA [Suspect]
     Active Substance: LEFLUNOMIDE
     Route: 065
     Dates: start: 201512, end: 201611
  2. TOFACITINIB [Suspect]
     Active Substance: TOFACITINIB
     Route: 065
     Dates: start: 201512, end: 201611

REACTIONS (4)
  - B-cell lymphoma [Recovering/Resolving]
  - Red blood cell sedimentation rate increased [Unknown]
  - Swollen joint count increased [Recovered/Resolved]
  - Tender joint count increased [Recovered/Resolved]

NARRATIVE: CASE EVENT DATE: 201606
